FAERS Safety Report 14511179 (Version 1)
Quarter: 2018Q1

REPORT INFORMATION
  Report Type: Report from Study
  Country: TW (occurrence: TW)
  Receive Date: 20180209
  Receipt Date: 20180209
  Transmission Date: 20180509
  Serious: Yes (Other)
  Sender: FDA-Public Use
  Company Number: TW-MYLANLABS-2018M1008884

PATIENT
  Age: 61 Year
  Sex: Female

DRUGS (5)
  1. IRINOTECAN [Suspect]
     Active Substance: IRINOTECAN
     Indication: COLORECTAL CANCER METASTATIC
     Dosage: 180 MG/M2 FOR 90 MINUTES
     Route: 050
  2. FLUOROURACIL. [Suspect]
     Active Substance: FLUOROURACIL
     Indication: COLORECTAL CANCER METASTATIC
     Dosage: 2400 MG/M2 CONTINUOUS INFUSION FOR 46 HOURS
     Route: 050
  3. STIVARGA [Suspect]
     Active Substance: REGORAFENIB
     Indication: COLORECTAL CANCER METASTATIC
     Dosage: 80 MG, UNK
     Route: 048
     Dates: start: 20151110
  4. FOLINIC ACID [Suspect]
     Active Substance: LEUCOVORIN
     Indication: COLORECTAL CANCER METASTATIC
     Dosage: 100 MG/M2 FOR 90 MINUTES
     Route: 050
  5. STIVARGA [Suspect]
     Active Substance: REGORAFENIB
     Dosage: 160 MG, UNK
     Route: 048
     Dates: end: 20160328

REACTIONS (2)
  - Neutropenia [Unknown]
  - Alopecia [Unknown]
